FAERS Safety Report 10646727 (Version 3)
Quarter: 2015Q2

REPORT INFORMATION
  Report Type: Spontaneous
  Country: FR (occurrence: FR)
  Receive Date: 20141211
  Receipt Date: 20150420
  Transmission Date: 20150821
  Serious: Yes (Death, Hospitalization, Other)
  Sender: FDA-Public Use
  Company Number: FR-INCYTE CORPORATION-2014IN003688

PATIENT
  Age: 72 Year
  Sex: Male

DRUGS (4)
  1. EXJADE [Concomitant]
     Active Substance: DEFERASIROX
     Indication: PRODUCT USED FOR UNKNOWN INDICATION
     Dosage: 500 MG
     Route: 065
  2. EXJADE [Concomitant]
     Active Substance: DEFERASIROX
     Dosage: 500 MG, UNK
  3. JAKAFI [Suspect]
     Active Substance: RUXOLITINIB
     Indication: MYELOFIBROSIS
     Dosage: 15 MG, BID
     Route: 048
     Dates: start: 201403, end: 201410
  4. EXJADE [Concomitant]
     Active Substance: DEFERASIROX
     Dosage: 500 MG, UNK

REACTIONS (14)
  - Pyramidal tract syndrome [Unknown]
  - Enterobacter infection [Recovered/Resolved]
  - Pyrexia [Recovered/Resolved]
  - Cerebral haemorrhage [Fatal]
  - Enterococcal infection [Recovered/Resolved]
  - Tuberculosis of central nervous system [Not Recovered/Not Resolved]
  - Meningitis tuberculous [Unknown]
  - Pulmonary tuberculosis [Unknown]
  - Dysphagia [Unknown]
  - Cerebrovascular accident [Unknown]
  - Hemiplegia [Unknown]
  - Disseminated tuberculosis [Unknown]
  - Joint tuberculosis [Unknown]
  - Respiratory distress [Unknown]

NARRATIVE: CASE EVENT DATE: 201407
